FAERS Safety Report 24051966 (Version 4)
Quarter: 2025Q3

REPORT INFORMATION
  Report Type: Spontaneous
  Country: JP (occurrence: JP)
  Receive Date: 20240704
  Receipt Date: 20250930
  Transmission Date: 20251020
  Serious: Yes (Other)
  Sender: APELLIS PHARMACEUTICALS
  Company Number: JP-BIOVITRUM-2024-JP-006313

PATIENT

DRUGS (4)
  1. EMPAVELI [Suspect]
     Active Substance: PEGCETACOPLAN
     Indication: Paroxysmal nocturnal haemoglobinuria
     Dosage: TWICE/WEEK
     Route: 058
  2. EMPAVELI [Suspect]
     Active Substance: PEGCETACOPLAN
     Dosage: 1080MG/DAY, TWICE A WEEK
     Route: 058
     Dates: start: 20250204, end: 20250521
  3. EMPAVELI [Suspect]
     Active Substance: PEGCETACOPLAN
     Dosage: 1080MG/DAY, TWICE A WEEK
     Route: 058
     Dates: start: 20250621, end: 20250917
  4. EMPAVELI [Suspect]
     Active Substance: PEGCETACOPLAN
     Dosage: 1080MG/DAY, TWICE A WEEK
     Route: 058
     Dates: start: 20240214, end: 20240604

REACTIONS (15)
  - Chills [Unknown]
  - Cough [Unknown]
  - Rhinorrhoea [Unknown]
  - Pyrexia [Recovered/Resolved]
  - Blood pressure systolic increased [Unknown]
  - Blood creatinine increased [Unknown]
  - Abdominal discomfort [Unknown]
  - Injection site pain [Unknown]
  - Fatigue [Unknown]
  - Malaise [Unknown]
  - Drug ineffective [Unknown]
  - Haemoglobin decreased [Recovered/Resolved]
  - Haemolytic anaemia [Recovered/Resolved]
  - Splenic vein thrombosis [Recovered/Resolved]
  - Blood lactate dehydrogenase increased [Not Recovered/Not Resolved]

NARRATIVE: CASE EVENT DATE: 20240410
